FAERS Safety Report 13422327 (Version 1)
Quarter: 2017Q2

REPORT INFORMATION
  Report Type: Spontaneous
  Country: US (occurrence: US)
  Receive Date: 20170408
  Receipt Date: 20170408
  Transmission Date: 20170830
  Serious: Yes (Disabling)
  Sender: FDA-Public Use
  Company Number: None

PATIENT
  Age: 75 Year
  Sex: Male
  Weight: 94.5 kg

DRUGS (10)
  1. RIVASTIGMINE TRANSDERMAL SYSTEM [Suspect]
     Active Substance: RIVASTIGMINE
     Indication: DEMENTIA ALZHEIMER^S TYPE
     Dosage: QUANTITY:1 PATCH(ES);?
     Route: 061
     Dates: start: 20170228, end: 20170302
  2. BABY ASPIRIN [Concomitant]
     Active Substance: ASPIRIN
  3. POSTANOL MACULAR SHIELD [Concomitant]
  4. CRESTOR [Concomitant]
     Active Substance: ROSUVASTATIN CALCIUM
  5. OMEGA 3 FISH OIL [Concomitant]
     Active Substance: FISH OIL\OMEGA-3 FATTY ACIDS
  6. DICLOFENAC [Concomitant]
     Active Substance: DICLOFENAC
  7. AMLODIPINE [Concomitant]
     Active Substance: AMLODIPINE BESYLATE
  8. RAMIPRIL. [Concomitant]
     Active Substance: RAMIPRIL
  9. NAMENDA XR [Concomitant]
     Active Substance: MEMANTINE HYDROCHLORIDE
  10. EXCELON [Concomitant]

REACTIONS (9)
  - Headache [None]
  - Nausea [None]
  - Impaired work ability [None]
  - Irritability [None]
  - Disorientation [None]
  - Dizziness [None]
  - Anxiety [None]
  - Somnolence [None]
  - Cognitive disorder [None]

NARRATIVE: CASE EVENT DATE: 20170228
